FAERS Safety Report 4390948-9 (Version None)
Quarter: 2004Q3

REPORT INFORMATION
  Report Type: 
  Country: None (occurrence: None)
  Receive Date: 20040702
  Receipt Date: 20040702
  Transmission Date: 20050211
  Serious: Yes (Other)
  Sender: FDA-Public Use
  Company Number: None

PATIENT
  Sex: Female
  Weight: 60 kg

DRUGS (1)
  1. DEFEROXAMINE - ABBOTT [Suspect]
     Indication: CONGENITAL APLASTIC ANAEMIA
     Dosage: SUB - Q
     Route: 058
     Dates: start: 20040605, end: 20040629

REACTIONS (4)
  - INFUSION SITE ERYTHEMA [None]
  - INFUSION SITE INDURATION [None]
  - INFUSION SITE PRURITUS [None]
  - INFUSION SITE REACTION [None]
